FAERS Safety Report 6274828-X (Version None)
Quarter: 2009Q4

REPORT INFORMATION
  Report Type: 
  Country: None (occurrence: None)
  Receive Date: 20090717
  Receipt Date: 20090706
  Transmission Date: 20100525
  Serious: Yes (Disabling)
  Sender: FDA-Public Use
  Company Number: APP200900378

PATIENT

DRUGS (3)
  1. SENSORCAINE [Suspect]
     Indication: SURGERY
     Dosage: CONTINUOUS VIA PUMP, INTRA-ARTICULAR
     Route: 014
  2. NAROPIN [Suspect]
     Indication: SURGERY
     Dosage: CONTINUOUS VIA PUMP, INTRA-ARTICULAR
     Route: 014
  3. I FLOW PAINBUSTER PAIN PUMP [Suspect]

REACTIONS (2)
  - CHONDROLYSIS [None]
  - MUSCULOSKELETAL PAIN [None]
